FAERS Safety Report 12100909 (Version 1)
Quarter: 2016Q1

REPORT INFORMATION
  Report Type: Spontaneous
  Country: US (occurrence: US)
  Receive Date: 20160222
  Receipt Date: 20160222
  Transmission Date: 20160526
  Serious: Yes (Other)
  Sender: FDA-Public Use
  Company Number: US-SMITH AND NEPHEW, INC-2016SMT00129

PATIENT
  Sex: Male

DRUGS (1)
  1. REGRANEX [Suspect]
     Active Substance: BECAPLERMIN

REACTIONS (2)
  - Gangrene [Unknown]
  - Off label use [Unknown]
